FAERS Safety Report 4569161-8 (Version None)
Quarter: 2005Q1

REPORT INFORMATION
  Report Type: 
  Country: None (occurrence: None)
  Receive Date: 20050203
  Receipt Date: 20040514
  Transmission Date: 20050727
  Serious: Yes (Hospitalization, Other)
  Sender: FDA-Public Use
  Company Number: GB-AMGEN-US077520

PATIENT
  Sex: Female

DRUGS (8)
  1. ENBREL [Suspect]
     Indication: RHEUMATOID ARTHRITIS
     Route: 058
     Dates: start: 20030707, end: 20040326
  2. METHOTREXATE [Concomitant]
     Dates: start: 20010101
  3. FOLIC ACID [Concomitant]
     Dates: start: 20010101
  4. PREDNISOLONE [Concomitant]
     Dates: start: 19970916
  5. RALOXIFENE HCL [Concomitant]
  6. RANITIDINE [Concomitant]
  7. DIHYDROCODEINE [Concomitant]
  8. ZOPICLONE [Concomitant]
     Dates: start: 20040610

REACTIONS (2)
  - BREAST CANCER STAGE III [None]
  - DEEP VEIN THROMBOSIS [None]
